FAERS Safety Report 15337181 (Version 4)
Quarter: 2018Q3

REPORT INFORMATION
  Report Type: Report from Study
  Country: CA (occurrence: CA)
  Receive Date: 20180831
  Receipt Date: 20180924
  Transmission Date: 20181010
  Serious: Yes (Hospitalization, Other)
  Sender: FDA-Public Use
  Company Number: CA-ROCHE-2174803

PATIENT
  Age: 44 Year
  Sex: Male

DRUGS (1)
  1. OCREVUS [Suspect]
     Active Substance: OCRELIZUMAB
     Indication: PRIMARY PROGRESSIVE MULTIPLE SCLEROSIS
     Dosage: 300 MG DAY 0 AND DAY 14THEN 600 MG Q 6 MONTHS ;ONGOING: YES
     Route: 042
     Dates: start: 20180809

REACTIONS (5)
  - Asthenia [Recovered/Resolved]
  - Pyrexia [Recovered/Resolved]
  - Dyspnoea [Not Recovered/Not Resolved]
  - Hemiparesis [Recovered/Resolved]
  - Full blood count abnormal [Unknown]

NARRATIVE: CASE EVENT DATE: 20180822
